FAERS Safety Report 7515654-0 (Version None)
Quarter: 2011Q2

REPORT INFORMATION
  Report Type: 
  Country: None (occurrence: None)
  Receive Date: 20110601
  Receipt Date: 20100723
  Transmission Date: 20111010
  Serious: Yes (Death, Other)
  Sender: FDA-Public Use
  Company Number: US-PFIZER INC-2010027413

PATIENT
  Sex: Male

DRUGS (3)
  1. CODIMAL DH [Concomitant]
     Indication: SINUSITIS
     Dosage: UNK
     Dates: start: 20070901, end: 20080301
  2. CODIMAL DH [Concomitant]
     Indication: COUGH
  3. CHANTIX [Suspect]
     Indication: SMOKING CESSATION THERAPY
     Dosage: 0.5 -1 MG
     Route: 048
     Dates: start: 20071104, end: 20080211

REACTIONS (6)
  - DEPRESSION [None]
  - CONFUSIONAL STATE [None]
  - AGGRESSION [None]
  - ANXIETY [None]
  - COMPLETED SUICIDE [None]
  - ABNORMAL BEHAVIOUR [None]
